FAERS Safety Report 11028155 (Version 2)
Quarter: 2015Q2

REPORT INFORMATION
  Report Type: Spontaneous
  Country: US (occurrence: US)
  Receive Date: 20150414
  Receipt Date: 20150525
  Transmission Date: 20150821
  Serious: No
  Sender: FDA-Public Use
  Company Number: US-JNJFOC-20120201995

PATIENT
  Sex: Female
  Weight: 56.7 kg

DRUGS (1)
  1. ORTHO TRI CYCLEN LO [Suspect]
     Active Substance: ETHINYL ESTRADIOL\NORGESTIMATE
     Indication: CONTRACEPTION
     Route: 048
     Dates: start: 2011, end: 201112

REACTIONS (5)
  - Inappropriate schedule of drug administration [Recovered/Resolved]
  - Nausea [Unknown]
  - Menstruation irregular [Unknown]
  - Drug administration error [Unknown]
  - Stress [Unknown]

NARRATIVE: CASE EVENT DATE: 2011
